FAERS Safety Report 15048898 (Version 1)
Quarter: 2018Q2

REPORT INFORMATION
  Report Type: Spontaneous
  Country: US (occurrence: US)
  Receive Date: 20180622
  Receipt Date: 20180622
  Transmission Date: 20180711
  Serious: No
  Sender: FDA-Public Use
  Company Number: US-ASTRAZENECA-2018SE80641

PATIENT
  Sex: Male

DRUGS (1)
  1. NEXIUM 24HR [Suspect]
     Active Substance: ESOMEPRAZOLE MAGNESIUM
     Dosage: 2.0DF UNKNOWN
     Route: 048

REACTIONS (4)
  - Pruritus [Unknown]
  - Intentional product misuse [Unknown]
  - Urticaria [Unknown]
  - Rash [Unknown]
